FAERS Safety Report 5491454-0 (Version None)
Quarter: 2007Q4

REPORT INFORMATION
  Report Type: 
  Country: None (occurrence: None)
  Receive Date: 20071018
  Receipt Date: 20071004
  Transmission Date: 20080405
  Serious: Yes (Death, Other)
  Sender: FDA-Public Use
  Company Number: 2007US002483

PATIENT
  Age: 56 Year
  Sex: Male

DRUGS (3)
  1. PROGRAF [Suspect]
     Indication: HEART TRANSPLANT
  2. MYCOPHENOLATE MOFETIL [Suspect]
     Indication: HEART TRANSPLANT
  3. PREDNISONE TAB [Suspect]
     Indication: HEART TRANSPLANT

REACTIONS (4)
  - CARDIAC FAILURE [None]
  - CYTOMEGALOVIRUS INFECTION [None]
  - HEART TRANSPLANT REJECTION [None]
  - VASCULAR GRAFT COMPLICATION [None]
